FAERS Safety Report 6522156-7 (Version None)
Quarter: 2009Q4

REPORT INFORMATION
  Report Type: 
  Country: None (occurrence: None)
  Receive Date: 20091230
  Receipt Date: 20091222
  Transmission Date: 20100525
  Serious: Yes (Hospitalization)
  Sender: FDA-Public Use
  Company Number: JP-EISAI INC.-E0800-00034-SPO-JP

PATIENT
  Sex: Female

DRUGS (10)
  1. SALAGEN [Suspect]
     Route: 048
     Dates: start: 20090701, end: 20090708
  2. ZOLOFT [Suspect]
     Indication: DEPRESSION
     Route: 048
     Dates: start: 20090612, end: 20090811
  3. SALIGREN [Suspect]
     Route: 048
     Dates: start: 20090612, end: 20090617
  4. SALIGREN [Suspect]
     Route: 048
     Dates: start: 20090618, end: 20090701
  5. LEXOTAN [Concomitant]
     Indication: DEPRESSION
     Route: 048
  6. MYSLEE [Concomitant]
     Indication: DEPRESSION
     Route: 048
  7. ROHYPNOL [Concomitant]
     Indication: DEPRESSION
     Route: 048
     Dates: start: 20090608
  8. SEROQUEL [Concomitant]
     Indication: DEPRESSION
     Route: 048
     Dates: start: 20090610
  9. MUCOSTA [Concomitant]
     Indication: GASTRITIS
     Route: 048
     Dates: start: 20090624
  10. MAGNESIUM OXIDE [Concomitant]
     Indication: CONSTIPATION
     Route: 048

REACTIONS (1)
  - AKATHISIA [None]
